FAERS Safety Report 8922558 (Version 2)
Quarter: 2013Q1

REPORT INFORMATION
  Report Type: Report from Study
  Country: JP (occurrence: JP)
  Receive Date: 20121123
  Receipt Date: 20130320
  Transmission Date: 20140127
  Serious: Yes (Hospitalization)
  Sender: FDA-Public Use
  Company Number: JP-PFIZER INC-2012198693

PATIENT
  Age: 65 Year
  Sex: Male
  Weight: 79.2 kg

DRUGS (4)
  1. TOFACITINIB CITRATE [Suspect]
     Indication: PSORIASIS
     Dosage: 10 MG, 2X/DAY
     Route: 048
     Dates: start: 20120221, end: 20120806
  2. TERBINAFINE HYDROCHLORIDE [Concomitant]
     Indication: TINEA PEDIS
     Dosage: UNK, ONCE DAILY
     Route: 061
     Dates: start: 20120516
  3. OXYTETRACYCLINE HYDROCHLORIDE [Concomitant]
     Indication: PSORIASIS
     Dosage: UNK, TWICE DAILY
     Route: 061
     Dates: start: 20120215
  4. KETOPROFEN [Concomitant]
     Indication: MUSCULOSKELETAL PAIN
     Dosage: UNK, AS NEEDED
     Route: 061
     Dates: start: 20120221

REACTIONS (1)
  - Organising pneumonia [Recovering/Resolving]
